FAERS Safety Report 16165734 (Version 3)
Quarter: 2019Q2

REPORT INFORMATION
  Report Type: Spontaneous
  Country: US (occurrence: US)
  Receive Date: 20190405
  Receipt Date: 20190422
  Transmission Date: 20190711
  Serious: No
  Sender: FDA-Public Use
  Company Number: US-JNJFOC-20190328397

PATIENT
  Age: 66 Year
  Sex: Female
  Weight: 67.13 kg

DRUGS (5)
  1. OXYCODON [Concomitant]
     Active Substance: OXYCODONE
     Indication: NECK PAIN
     Route: 048
  2. LOSARTAN. [Concomitant]
     Active Substance: LOSARTAN
     Indication: BLOOD PRESSURE MEASUREMENT
     Route: 048
  3. INVOKANA [Suspect]
     Active Substance: CANAGLIFLOZIN
     Indication: DIABETES MELLITUS
     Route: 048
     Dates: start: 20190306, end: 20190402
  4. VALIUM [Concomitant]
     Active Substance: DIAZEPAM
  5. DILTIAZEM. [Concomitant]
     Active Substance: DILTIAZEM
     Route: 048

REACTIONS (16)
  - Expired product administered [Unknown]
  - Expired product administered [Not Recovered/Not Resolved]
  - Orthostatic hypotension [Unknown]
  - Vision blurred [Unknown]
  - Peripheral coldness [Unknown]
  - Urinary incontinence [Unknown]
  - Fungal infection [Not Recovered/Not Resolved]
  - Vaginal infection [Not Recovered/Not Resolved]
  - Skin irritation [Unknown]
  - Rash [Unknown]
  - Vulvovaginal inflammation [Unknown]
  - Dizziness [Not Recovered/Not Resolved]
  - Confusional state [Unknown]
  - Vulvitis [Not Recovered/Not Resolved]
  - Saccadic eye movement [Unknown]
  - Dermatitis contact [Not Recovered/Not Resolved]

NARRATIVE: CASE EVENT DATE: 201903
